FAERS Safety Report 5594153-X (Version None)
Quarter: 2008Q1

REPORT INFORMATION
  Report Type: 
  Country: None (occurrence: None)
  Receive Date: 20080115
  Receipt Date: 20080103
  Transmission Date: 20080703
  Serious: Yes (Other)
  Sender: FDA-Public Use
  Company Number: 2008AP000019

PATIENT
  Age: 63 Year
  Sex: Female

DRUGS (2)
  1. VALPROIC ACID SYRUP [Suspect]
     Indication: CONVULSION
     Dosage: 500 MG;QD;
  2. GABAPENTIN [Concomitant]

REACTIONS (2)
  - LOSS OF CONSCIOUSNESS [None]
  - MYELODYSPLASTIC SYNDROME [None]
